FAERS Safety Report 8224960-6 (Version None)
Quarter: 2012Q1

REPORT INFORMATION
  Report Type: 
  Country: None (occurrence: None)
  Receive Date: 20120321
  Receipt Date: 20120312
  Transmission Date: 20120608
  Serious: Yes (Hospitalization)
  Sender: FDA-Public Use
  Company Number: US-BAYER-2011-100944

PATIENT
  Sex: Female
  Weight: 113.38 kg

DRUGS (6)
  1. YAZ [Suspect]
     Dosage: UNK
  2. IBUPROFEN [Concomitant]
     Dosage: UNK UNK, PRN
  3. PROZAC [Concomitant]
     Indication: DEPRESSION
     Dosage: 40 MG, TABLET
     Dates: start: 20070101, end: 20110101
  4. LISINOPRIL [Concomitant]
     Indication: HYPERTENSION
     Dosage: 20 MG, TABLET
     Dates: start: 20080101, end: 20110101
  5. MOTRIN [Concomitant]
     Dosage: UNK UNK, PRN
  6. METOPROLOL SUCCINATE [Concomitant]
     Indication: HYPERTENSION
     Dosage: 25 MG, TABLET
     Dates: start: 20080101, end: 20110101

REACTIONS (8)
  - INJURY [None]
  - GENERAL PHYSICAL HEALTH DETERIORATION [None]
  - PAIN [None]
  - DIARRHOEA [None]
  - ABDOMINAL PAIN [None]
  - ANXIETY [None]
  - EMOTIONAL DISTRESS [None]
  - GALLBLADDER NON-FUNCTIONING [None]
